FAERS Safety Report 13790196 (Version 1)
Quarter: 2017Q3

REPORT INFORMATION
  Report Type: Spontaneous
  Country: US (occurrence: US)
  Receive Date: 20170725
  Receipt Date: 20170725
  Transmission Date: 20171127
  Serious: Yes (Hospitalization)
  Sender: FDA-Public Use
  Company Number: US-BRISTOL-MYERS SQUIBB COMPANY-BMS-2017-062486

PATIENT
  Age: 74 Year
  Sex: Female
  Weight: 61.5 kg

DRUGS (2)
  1. NULOJIX [Suspect]
     Active Substance: BELATACEPT
     Indication: PRODUCT USED FOR UNKNOWN INDICATION
     Dosage: 312.5 MG, UNK
     Route: 065
     Dates: start: 20160323
  2. NULOJIX [Suspect]
     Active Substance: BELATACEPT
     Indication: PRODUCT USED FOR UNKNOWN INDICATION
     Dosage: 312.5 UNK, UNK
     Route: 065
     Dates: start: 201706

REACTIONS (4)
  - Gastroenteritis viral [Unknown]
  - Nausea [Unknown]
  - Retching [Unknown]
  - Diarrhoea [Unknown]

NARRATIVE: CASE EVENT DATE: 20170611
